FAERS Safety Report 22620633 (Version 1)
Quarter: 2023Q2

REPORT INFORMATION
  Report Type: Spontaneous
  Country: US (occurrence: US)
  Receive Date: 20230620
  Receipt Date: 20230620
  Transmission Date: 20230722
  Serious: No
  Sender: FDA-Public Use
  Company Number: US-PFIZER INC-PV202300106613

PATIENT
  Age: 60 Year
  Sex: Female

DRUGS (1)
  1. EPOETIN ALFA [Suspect]
     Active Substance: ERYTHROPOIETIN
     Dosage: UNK

REACTIONS (2)
  - Drug eruption [Unknown]
  - Vomiting [Unknown]
